FAERS Safety Report 8979281 (Version 5)
Quarter: 2013Q2

REPORT INFORMATION
  Report Type: Spontaneous
  Country: CA (occurrence: CA)
  Receive Date: 20121221
  Receipt Date: 20130410
  Transmission Date: 20140414
  Serious: Yes (Other)
  Sender: FDA-Public Use
  Company Number: PHHY2012CA114102

PATIENT
  Age: 78 Year
  Sex: Female

DRUGS (7)
  1. EXJADE [Suspect]
     Indication: MYELODYSPLASTIC SYNDROME
     Dosage: 1000 MG, QD
     Route: 048
     Dates: start: 20121116
  2. EXJADE [Suspect]
     Dosage: UNK UKN, UNK
     Dates: start: 201211
  3. EXJADE [Suspect]
     Dosage: UNK UKN, UNK
     Route: 048
     Dates: start: 20121116, end: 20121125
  4. EXJADE [Suspect]
     Dosage: UNK UKN, UNK
     Route: 048
     Dates: start: 20121119
  5. SYNTHROID [Concomitant]
     Dosage: 0.1 MG, QD
     Route: 048
  6. CALCIUM [Concomitant]
     Dosage: UNK UKN, UNK
  7. IRBESARTAN [Concomitant]
     Dosage: UNK UKN, UNK

REACTIONS (14)
  - Oral discomfort [Recovering/Resolving]
  - Throat irritation [Not Recovered/Not Resolved]
  - Tremor [Unknown]
  - Aphagia [Unknown]
  - Skin disorder [Unknown]
  - Decreased appetite [Unknown]
  - Drug hypersensitivity [Unknown]
  - Diarrhoea [Recovering/Resolving]
  - Hypersensitivity [Recovering/Resolving]
  - Pruritus [Recovering/Resolving]
  - Rash [Unknown]
  - Skin exfoliation [Unknown]
  - Malaise [Unknown]
  - Movement disorder [Unknown]
